FAERS Safety Report 20731919 (Version 1)
Quarter: 2022Q2

REPORT INFORMATION
  Report Type: Report from Study
  Country: US (occurrence: None)
  Receive Date: 20220420
  Receipt Date: 20220420
  Transmission Date: 20220721
  Serious: Yes (Death)
  Sender: FDA-Public Use
  Company Number: US-ROCHE-3078849

PATIENT
  Age: 66 Year
  Sex: Female

DRUGS (14)
  1. COBIMETINIB [Suspect]
     Active Substance: COBIMETINIB
     Indication: Gastrointestinal carcinoma
     Dosage: LAST DOSE OF COBIMETINIB: 08/FEB/2022
     Route: 048
     Dates: start: 20210924
  2. HYDROXYCHLOROQUINE [Suspect]
     Active Substance: HYDROXYCHLOROQUINE
     Indication: Gastrointestinal carcinoma
     Dosage: LAST DOSE OF HYDROXYCHLOROQUINE: 09/FEB/2022
     Route: 048
     Dates: start: 20210924
  3. ZOFRAN [Concomitant]
     Active Substance: ONDANSETRON HYDROCHLORIDE
     Route: 042
     Dates: start: 20220211
  4. CEFOXITIN [Concomitant]
     Active Substance: CEFOXITIN SODIUM
     Dates: start: 20220213
  5. ACETAMINOPHEN [Concomitant]
     Active Substance: ACETAMINOPHEN
     Route: 048
  6. DOCUSATE SODIUM [Concomitant]
     Active Substance: DOCUSATE SODIUM
     Route: 048
  7. SODIUM CHLORIDE [Concomitant]
     Active Substance: SODIUM CHLORIDE
     Dosage: 0.9%
     Route: 042
  8. DEXTROSE;SODIUM BICARBONATE [Concomitant]
     Dosage: DEXTROSE 5% IN WATER INTRAVENOUS SOLUTION 1,000 ML + SODIUM BICARBONATE (IV ADDITIVE) 150 MEQ
  9. DILAUDID [Concomitant]
     Active Substance: HYDROMORPHONE HYDROCHLORIDE
  10. HEPARIN [Concomitant]
     Active Substance: HEPARIN SODIUM
  11. PEPCID [Concomitant]
     Active Substance: FAMOTIDINE
  12. PERCOCET [Concomitant]
     Active Substance: ACETAMINOPHEN\OXYCODONE HYDROCHLORIDE
     Route: 048
  13. ALPRAZOLAM [Concomitant]
     Active Substance: ALPRAZOLAM
     Route: 048
  14. ENOXAPARIN [Concomitant]
     Active Substance: ENOXAPARIN
     Dosage: 100 MG/ML

REACTIONS (1)
  - Acute kidney injury [Fatal]

NARRATIVE: CASE EVENT DATE: 20220212
